FAERS Safety Report 25527694 (Version 1)
Quarter: 2025Q3

REPORT INFORMATION
  Report Type: Spontaneous
  Country: US (occurrence: US)
  Receive Date: 20250708
  Receipt Date: 20250708
  Transmission Date: 20251020
  Serious: No
  Sender: AMGEN
  Company Number: US-AMGEN-USASP2025130010

PATIENT
  Sex: Female

DRUGS (2)
  1. REPATHA [Suspect]
     Active Substance: EVOLOCUMAB
     Indication: Product used for unknown indication
     Route: 065
  2. HUMIRA [Concomitant]
     Active Substance: ADALIMUMAB
     Route: 065

REACTIONS (4)
  - Injection site pain [Unknown]
  - Pain in extremity [Unknown]
  - Pain [Unknown]
  - Ill-defined disorder [Unknown]
